FAERS Safety Report 8395414-1 (Version None)
Quarter: 2012Q2

REPORT INFORMATION
  Report Type: 
  Country: None (occurrence: None)
  Receive Date: 20120525
  Receipt Date: 20120525
  Transmission Date: 20120825
  Serious: Yes (Other)
  Sender: FDA-Public Use
  Company Number: None

PATIENT
  Sex: Female
  Weight: 77.3 kg

DRUGS (2)
  1. DOCETAXEL [Suspect]
  2. DOCETAXEL [Suspect]
     Indication: BREAST CANCER
     Dosage: 120 MG EVERY 2 WEEKS IV INFUSION
     Route: 042
     Dates: start: 20120419

REACTIONS (2)
  - RASH [None]
  - OEDEMA PERIPHERAL [None]
